FAERS Safety Report 7802799-0 (Version None)
Quarter: 2011Q4

REPORT INFORMATION
  Report Type: 
  Country: None (occurrence: None)
  Receive Date: 20111007
  Receipt Date: 20111003
  Transmission Date: 20120403
  Serious: Yes (Other)
  Sender: FDA-Public Use
  Company Number: US-PFIZER INC-2011236053

PATIENT
  Sex: Female
  Weight: 74.38 kg

DRUGS (2)
  1. LIPITOR [Suspect]
     Indication: BLOOD CHOLESTEROL INCREASED
     Dosage: 40 MG, 1X/DAY
     Route: 048
     Dates: start: 19980101, end: 20020101
  2. PRAVACHOL [Suspect]
     Indication: BLOOD CHOLESTEROL INCREASED
     Dosage: UNK
     Dates: start: 20020101

REACTIONS (1)
  - ARTERIAL OCCLUSIVE DISEASE [None]
